FAERS Safety Report 18617296 (Version 1)
Quarter: 2020Q4

REPORT INFORMATION
  Report Type: Spontaneous
  Country: AT (occurrence: AT)
  Receive Date: 20201215
  Receipt Date: 20201215
  Transmission Date: 20210114
  Serious: Yes (Hospitalization)
  Sender: FDA-Public Use
  Company Number: AT-TEVA-2020-AT-1857187

PATIENT
  Age: 87 Year
  Sex: Male
  Weight: 61.2 kg

DRUGS (1)
  1. VANCOMYCIN 500 MG [Suspect]
     Active Substance: VANCOMYCIN
     Indication: INTERVERTEBRAL DISCITIS
     Dosage: DEPENDING ON THE MIRROR 1.5-0.5 G
     Route: 065
     Dates: start: 20201031, end: 20201112

REACTIONS (3)
  - Acute kidney injury [Unknown]
  - Neutropenia [Unknown]
  - Leukopenia [Unknown]

NARRATIVE: CASE EVENT DATE: 20201118
